FAERS Safety Report 23196274 (Version 1)
Quarter: 2023Q4

REPORT INFORMATION
  Report Type: Spontaneous
  Country: CA (occurrence: CA)
  Receive Date: 20231117
  Receipt Date: 20231117
  Transmission Date: 20240110
  Serious: Yes (Other)
  Sender: FDA-Public Use
  Company Number: CA-HIKMA PHARMACEUTICALS USA INC.-CA-H14001-23-66879

PATIENT

DRUGS (3)
  1. AMIKACIN [Suspect]
     Active Substance: AMIKACIN
     Indication: Mycobacterium avium complex infection
     Dosage: 1 EVERY 3 WEEKS
     Route: 065
  2. ETHAMBUTOL [Suspect]
     Active Substance: ETHAMBUTOL HYDROCHLORIDE
     Indication: Mycobacterium avium complex infection
     Dosage: UNK UNK, QD
     Route: 065
  3. RIFAMYCIN [Suspect]
     Active Substance: RIFAMYCIN
     Indication: Mycobacterium avium complex infection
     Dosage: UNK, QD
     Route: 065

REACTIONS (3)
  - Respiratory symptom [Unknown]
  - Weight decreased [Unknown]
  - Therapeutic response decreased [Unknown]
